FAERS Safety Report 10244271 (Version 1)
Quarter: 2014Q2

REPORT INFORMATION
  Report Type: Spontaneous
  Country: US (occurrence: None)
  Receive Date: 20140616
  Receipt Date: 20140616
  Transmission Date: 20141212
  Serious: No
  Sender: FDA-Public Use
  Company Number: None

PATIENT
  Age: 43 Year
  Sex: Female

DRUGS (1)
  1. ACTHAR GEL [Suspect]
     Dosage: 80U QD IM
     Route: 030
     Dates: start: 20140606

REACTIONS (1)
  - Injection site urticaria [None]
